FAERS Safety Report 8514163-X (Version None)
Quarter: 2012Q3

REPORT INFORMATION
  Report Type: 
  Country: None (occurrence: None)
  Receive Date: 20120717
  Receipt Date: 20120705
  Transmission Date: 20120928
  Serious: Yes (Hospitalization)
  Sender: FDA-Public Use
  Company Number: JP-BRISTOL-MYERS SQUIBB COMPANY-16770778

PATIENT
  Age: 38 Year
  Sex: Male

DRUGS (6)
  1. EPIVIR [Suspect]
     Indication: HIV INFECTION
     Dosage: TABS
     Route: 048
     Dates: start: 20000904, end: 20060829
  2. RECOMBINATE [Concomitant]
     Dosage: INJ
     Dates: end: 20070406
  3. ZERIT [Suspect]
     Indication: HIV INFECTION
     Route: 048
     Dates: start: 20000519, end: 20060829
  4. ENALAPRIL MALEATE [Concomitant]
     Dosage: TABS
  5. EFAVIRENZ [Suspect]
     Indication: HIV INFECTION
     Dosage: FILM COATED TABS
     Route: 048
     Dates: start: 20000901, end: 20100711
  6. TRUVADA [Suspect]
     Indication: HIV INFECTION
     Dosage: 1DF=1 TABLET
     Route: 048
     Dates: start: 20060830

REACTIONS (1)
  - VARICES OESOPHAGEAL [None]
